FAERS Safety Report 7797994-3 (Version None)
Quarter: 2011Q4

REPORT INFORMATION
  Report Type: 
  Country: None (occurrence: None)
  Receive Date: 20111005
  Receipt Date: 20110928
  Transmission Date: 20120403
  Serious: Yes (Other)
  Sender: FDA-Public Use
  Company Number: JP-GLAXOSMITHKLINE-B0752042A

PATIENT
  Age: 67 Year
  Sex: Female

DRUGS (2)
  1. TYKERB [Suspect]
     Indication: PRODUCT USED FOR UNKNOWN INDICATION
     Dosage: 1000MG PER DAY
     Route: 048
  2. XELODA [Concomitant]
     Route: 048

REACTIONS (4)
  - SKIN ATROPHY [None]
  - ABDOMINAL DISCOMFORT [None]
  - INCORRECT DOSE ADMINISTERED [None]
  - ERYTHEMA [None]
